FAERS Safety Report 7364106-X (Version None)
Quarter: 2011Q1

REPORT INFORMATION
  Report Type: 
  Country: None (occurrence: None)
  Receive Date: 20110321
  Receipt Date: 20110315
  Transmission Date: 20110831
  Serious: Yes (Life-Threatening, Hospitalization)
  Sender: FDA-Public Use
  Company Number: PHHY2011FR21098

PATIENT
  Sex: Female

DRUGS (1)
  1. VOLTARENE LP [Suspect]
     Indication: PAIN IN EXTREMITY
     Dosage: 2 DF, BID
     Route: 048
     Dates: start: 20110223, end: 20110227

REACTIONS (10)
  - GASTROINTESTINAL PERFORATION [None]
  - HAEMODYNAMIC INSTABILITY [None]
  - RESPIRATORY FAILURE [None]
  - PERITONITIS [None]
  - RENAL FAILURE [None]
  - INCORRECT DOSE ADMINISTERED [None]
  - VIITH NERVE PARALYSIS [None]
  - ABDOMINAL PAIN UPPER [None]
  - CEREBROVASCULAR ACCIDENT [None]
  - SEPTIC SHOCK [None]
